FAERS Safety Report 5879877-9 (Version None)
Quarter: 2008Q3

REPORT INFORMATION
  Report Type: 
  Country: None (occurrence: None)
  Receive Date: 20080912
  Receipt Date: 20080902
  Transmission Date: 20090109
  Serious: Yes (Other)
  Sender: FDA-Public Use
  Company Number: GB-ROCHE-574998

PATIENT
  Sex: Male
  Weight: 85 kg

DRUGS (2)
  1. PEGASYS [Suspect]
     Indication: HEPATITIS C
     Route: 030
     Dates: start: 20080403, end: 20080613
  2. RIBAVIRIN [Concomitant]
     Indication: HEPATITIS C
     Dosage: BATCH NUMBER B3135, EXPIRY DATE JULY 2010
     Route: 048
     Dates: start: 20080403, end: 20080613

REACTIONS (3)
  - ANXIETY [None]
  - LOSS OF CONSCIOUSNESS [None]
  - PANIC ATTACK [None]
